FAERS Safety Report 6242527-6 (Version None)
Quarter: 2009Q2

REPORT INFORMATION
  Report Type: 
  Country: None (occurrence: None)
  Receive Date: 20090624
  Receipt Date: 20090616
  Transmission Date: 20091009
  Serious: Yes (Hospitalization)
  Sender: FDA-Public Use
  Company Number: KR-ROCHE-622370

PATIENT
  Sex: Female
  Weight: 49 kg

DRUGS (6)
  1. CAPECITABINE [Suspect]
     Dosage: MOST RECENT DATE OF DOSE REPORTED AS ^36 OCT 2009^. 2 WEEKS TREATMENT,1 WEEK REST. TREATMENT DELAYED
     Route: 048
     Dates: start: 20081028
  2. CAPECITABINE [Suspect]
     Route: 048
     Dates: start: 20090326
  3. OXALIPLATIN [Suspect]
     Dosage: GIVEN ON DAY 1, MOST RECENT DOSE: 24 FEB 2009.
     Route: 042
     Dates: start: 20081028
  4. CEFDINIR [Concomitant]
     Dates: start: 20090317, end: 20090323
  5. ZALTOPROFEN [Concomitant]
     Dates: start: 20090317, end: 20090323
  6. ECABET [Concomitant]
     Dosage: DRUG: ECABET NA, TDD: 4.5 G/PACK
     Dates: start: 20090317, end: 20090323

REACTIONS (1)
  - GINGIVITIS [None]
